FAERS Safety Report 13508694 (Version 1)
Quarter: 2017Q2

REPORT INFORMATION
  Report Type: Spontaneous
  Country: US (occurrence: US)
  Receive Date: 20170503
  Receipt Date: 20170503
  Transmission Date: 20170830
  Serious: No
  Sender: FDA-Public Use
  Company Number: US-ASTRAZENECA-2016SF10658

PATIENT
  Age: 18358 Day
  Sex: Female
  Weight: 96.2 kg

DRUGS (4)
  1. BYDUREON [Suspect]
     Active Substance: EXENATIDE
     Indication: TYPE 2 DIABETES MELLITUS
     Route: 058
     Dates: start: 201610
  2. VASOTEC [Concomitant]
     Active Substance: ENALAPRIL MALEATE
     Dosage: DAILY
     Route: 048
  3. NEURONTIN [Concomitant]
     Active Substance: GABAPENTIN
     Route: 048
  4. METFORMIN [Concomitant]
     Active Substance: METFORMIN HYDROCHLORIDE
     Indication: DIABETES MELLITUS
     Route: 048

REACTIONS (1)
  - Injection site extravasation [Not Recovered/Not Resolved]

NARRATIVE: CASE EVENT DATE: 20161017
